FAERS Safety Report 18554731 (Version 1)
Quarter: 2020Q4

REPORT INFORMATION
  Report Type: Spontaneous
  Country: GB (occurrence: GB)
  Receive Date: 20201127
  Receipt Date: 20201127
  Transmission Date: 20210114
  Serious: Yes (Other)
  Sender: FDA-Public Use
  Company Number: GB-TEVA-2020-GB-1853135

PATIENT
  Age: 82 Year
  Sex: Female
  Weight: 83 kg

DRUGS (12)
  1. INDAPAMIDE. [Concomitant]
     Active Substance: INDAPAMIDE
     Dosage: UNIT DOSE : 1 DOSAGE FORMS
     Dates: start: 20191216
  2. AMITRIPTYLINE HYDROCHLORIDE. [Concomitant]
     Active Substance: AMITRIPTYLINE HYDROCHLORIDE
     Dosage: USE AS DIRECTED BY A HEALTHCARE PROFESSIONAL
     Dates: start: 20191216
  3. QUININE [Concomitant]
     Active Substance: QUININE
     Dosage: UNIT DOSE : 1 DOSAGE FORMS
     Dates: start: 20191216
  4. BUTEC [Concomitant]
     Active Substance: BUPRENORPHINE
     Dosage: APPLY, UNIT DOSE : 1 DOSAGE FORMS
     Dates: start: 20191216
  5. FENBID [Concomitant]
     Active Substance: IBUPROFEN
     Dosage: APPLY, UNIT DOSE : 3 DOSAGE FORMS
     Route: 061
     Dates: start: 20191216, end: 20201029
  6. IBUPROFEN. [Suspect]
     Active Substance: IBUPROFEN
     Dosage: UNIT DOSE : 400 MG
     Dates: start: 20190222
  7. PARACETAMOL [Concomitant]
     Active Substance: ACETAMINOPHEN
     Dosage: TAKE 1 OR 2
     Dates: start: 20191216
  8. MOVELAT [Concomitant]
     Dosage: APPLY, UNIT DOSE : 3 DOSAGE FORMS
     Dates: start: 20201029
  9. CODEINE PHOSPHATE [Concomitant]
     Active Substance: CODEINE PHOSPHATE
     Dosage: UNIT DOSE : 8 DOSAGE FORMS
     Dates: start: 20191216
  10. NITROFURANTOIN. [Concomitant]
     Active Substance: NITROFURANTOIN
     Dosage: UNIT DOSE : 4 DOSAGE FORMS
     Dates: start: 20200812, end: 20200819
  11. OMEPRAZOLE. [Concomitant]
     Active Substance: OMEPRAZOLE
     Dosage: UNIT DOSE : 1 DOSAGE FORMS
     Dates: start: 20191216
  12. LERCANIDIPINE HYDROCHLORIDE [Concomitant]
     Active Substance: LERCANIDIPINE HYDROCHLORIDE
     Dosage: UNIT DOSE : 1 DOSAGE FORMS
     Dates: start: 20191216

REACTIONS (2)
  - Renal disorder [Unknown]
  - Drug hypersensitivity [Recovered/Resolved]

NARRATIVE: CASE EVENT DATE: 20201030
